FAERS Safety Report 11801964 (Version 1)
Quarter: 2015Q4

REPORT INFORMATION
  Report Type: Spontaneous
  Country: US (occurrence: None)
  Receive Date: 20151203
  Receipt Date: 20151203
  Transmission Date: 20160305
  Serious: Yes (Hospitalization, Other)
  Sender: FDA-Public Use
  Company Number: None

PATIENT
  Age: 51 Year
  Sex: Male
  Weight: 72.58 kg

DRUGS (4)
  1. SEROQUEL [Concomitant]
     Active Substance: QUETIAPINE FUMARATE
  2. HCF [Concomitant]
  3. ADDERALL [Suspect]
     Active Substance: AMPHETAMINE ASPARTATE\AMPHETAMINE SULFATE\DEXTROAMPHETAMINE SACCHARATE\DEXTROAMPHETAMINE SULFATE
     Indication: ATTENTION DEFICIT/HYPERACTIVITY DISORDER
     Route: 048
  4. FISH OIL [Concomitant]
     Active Substance: FISH OIL

REACTIONS (14)
  - Loss of employment [None]
  - Somnambulism [None]
  - Impaired work ability [None]
  - Screaming [None]
  - Physical assault [None]
  - Anxiety [None]
  - Abnormal behaviour [None]
  - Paranoia [None]
  - Prescribed overdose [None]
  - Abulia [None]
  - Sleep disorder [None]
  - Feeling abnormal [None]
  - Memory impairment [None]
  - Aggression [None]

NARRATIVE: CASE EVENT DATE: 20150910
